FAERS Safety Report 23667711 (Version 1)
Quarter: 2024Q1

REPORT INFORMATION
  Report Type: Spontaneous
  Country: DE (occurrence: DE)
  Receive Date: 20240325
  Receipt Date: 20240325
  Transmission Date: 20240410
  Serious: Yes (Other)
  Sender: FDA-Public Use
  Company Number: DE-AMRYT PHARMACEUTICALS DAC-AEGR006898

PATIENT
  Age: 43 Year
  Sex: Female

DRUGS (5)
  1. INSULIN HUMAN [Suspect]
     Active Substance: INSULIN HUMAN
     Indication: Product used for unknown indication
     Dosage: 60 INTERNATIONAL UNIT, QD
     Route: 065
  2. INSULIN HUMAN [Suspect]
     Active Substance: INSULIN HUMAN
     Dosage: 40 INTERNATIONAL UNIT, QD
     Route: 065
  3. METRELEPTIN [Suspect]
     Active Substance: METRELEPTIN
     Indication: Familial partial lipodystrophy
     Dosage: 5 MILLIGRAM, QD
     Route: 058
  4. INSULIN NOS [Suspect]
     Active Substance: INSULIN NOS
     Indication: Product used for unknown indication
     Dosage: 60 INTERNATIONAL UNIT, QD
     Route: 065
  5. INSULIN NOS [Suspect]
     Active Substance: INSULIN NOS
     Dosage: 40 INTERNATIONAL UNIT, QD
     Route: 065

REACTIONS (2)
  - Acute kidney injury [Unknown]
  - Hypoglycaemia [Recovered/Resolved]
